FAERS Safety Report 8932839 (Version 1)
Quarter: 2012Q4

REPORT INFORMATION
  Report Type: 
  Country: US (occurrence: US)
  Receive Date: 20121128
  Receipt Date: 20121128
  Transmission Date: 20130627
  Serious: Yes (Hospitalization, Other)
  Sender: FDA-Public Use
  Company Number: US-OTSUKA-US-2012-11688

PATIENT
  Age: 48 Year
  Sex: Male

DRUGS (2)
  1. SAMSCA [Suspect]
     Indication: INAPPROPRIATE ANTIDIURETIC HORMONE SECRETION
     Dosage: 15 Mg milligram(s), qd
     Route: 048
     Dates: start: 201211, end: 20121117
  2. OMEPRAZOLE [Concomitant]
     Dosage: 40 Mg milligram(s), bid

REACTIONS (3)
  - Rapid correction of hyponatraemia [Recovered/Resolved]
  - Mental status changes [Recovered/Resolved]
  - Confusional state [Recovered/Resolved]
